FAERS Safety Report 4806676-9 (Version None)
Quarter: 2005Q4

REPORT INFORMATION
  Report Type: 
  Country: None (occurrence: None)
  Receive Date: 20051021
  Receipt Date: 20051004
  Transmission Date: 20060501
  Serious: Yes (Hospitalization)
  Sender: FDA-Public Use
  Company Number: US-ABBOTT-05P-163-0312881-00

PATIENT
  Sex: Female
  Weight: 77.18 kg

DRUGS (17)
  1. HUMIRA [Suspect]
     Indication: RHEUMATOID ARTHRITIS
     Route: 058
     Dates: start: 20050505, end: 20050901
  2. HYDROXYCHLOROQUINE PHOSPHATE [Concomitant]
     Indication: RHEUMATOID ARTHRITIS
     Dates: start: 20031023
  3. FLUCONAZOLE [Concomitant]
     Indication: FUNGAL INFECTION
     Dates: start: 20050328, end: 20050328
  4. AMOXICILLIN [Concomitant]
     Indication: COUGH
     Dates: start: 20050328, end: 20050402
  5. AMOXICILLIN [Concomitant]
     Indication: BRONCHITIS
  6. CRESTOR [Concomitant]
     Indication: HYPERLIPIDAEMIA
     Dates: start: 20050422
  7. DIGOXIN [Concomitant]
     Indication: SUPRAVENTRICULAR TACHYCARDIA
     Dates: start: 19930101
  8. ATENOLOL [Concomitant]
     Indication: MIGRAINE
     Dates: start: 20010101
  9. GLUCOSAMINE W/CHONDROITIN SULFATES [Concomitant]
     Indication: MINERAL SUPPLEMENTATION
     Dates: start: 20000101
  10. ESOMEPRAZOLE [Concomitant]
     Indication: PROPHYLAXIS AGAINST GASTROINTESTINAL ULCER
     Dates: start: 20050317
  11. B-KOMPLEX ^LECIVA^ [Concomitant]
     Indication: VITAMIN SUPPLEMENTATION
     Dates: start: 20020101
  12. CALCIUM GLUCONATE [Concomitant]
     Indication: MINERAL SUPPLEMENTATION
     Dates: start: 20041201
  13. ASCORBIC ACID [Concomitant]
     Indication: VITAMIN SUPPLEMENTATION
     Dates: start: 19990101
  14. MULTI-VITAMINS [Concomitant]
     Indication: VITAMIN SUPPLEMENTATION
     Dates: start: 19990101
  15. ASPIRIN [Concomitant]
     Indication: THROMBOSIS PROPHYLAXIS
     Dates: start: 20030327
  16. METHOTREXATE [Concomitant]
     Indication: RHEUMATOID ARTHRITIS
     Dates: start: 20031114
  17. PROPACET 100 [Concomitant]
     Indication: RHEUMATOID ARTHRITIS
     Dates: start: 20041201

REACTIONS (4)
  - CANDIDIASIS [None]
  - ESCHERICHIA INFECTION [None]
  - PNEUMONIA LEGIONELLA [None]
  - SPUTUM CULTURE POSITIVE [None]
